FAERS Safety Report 6245778-X (Version None)
Quarter: 2009Q2

REPORT INFORMATION
  Report Type: 
  Country: None (occurrence: None)
  Receive Date: 20090624
  Receipt Date: 20090608
  Transmission Date: 20091009
  Serious: Yes (Hospitalization)
  Sender: FDA-Public Use
  Company Number: 20090858

PATIENT
  Sex: Female
  Weight: 65.76 kg

DRUGS (4)
  1. OMEPRAZOLE [Suspect]
     Indication: DYSPEPSIA
     Dosage: 20 MG ONCE A DAY, ORAL
     Route: 048
     Dates: start: 20090524, end: 20090604
  2. THYROID TAB [Concomitant]
  3. MOBIC [Concomitant]
  4. TRIAMTERENE [Concomitant]

REACTIONS (2)
  - DRY MOUTH [None]
  - VOMITING [None]
